FAERS Safety Report 7860231-5 (Version None)
Quarter: 2011Q4

REPORT INFORMATION
  Report Type: 
  Country: None (occurrence: None)
  Receive Date: 20111027
  Receipt Date: 20101011
  Transmission Date: 20120403
  Serious: No
  Sender: FDA-Public Use
  Company Number: US-BAYER-201036424NA

PATIENT
  Sex: Male

DRUGS (3)
  1. LEVITRA [Suspect]
     Dosage: 10 UNK, UNK
  2. LEVITRA [Suspect]
     Dosage: 20 MG, UNK
  3. LEVITRA [Suspect]
     Dosage: 5 MG, UNK

REACTIONS (3)
  - ERECTILE DYSFUNCTION [None]
  - FEELING HOT [None]
  - HEADACHE [None]
